FAERS Safety Report 9517137 (Version 5)
Quarter: 2014Q2

REPORT INFORMATION
  Report Type: Report from Study
  Country: JP (occurrence: JP)
  Receive Date: 20130911
  Receipt Date: 20140616
  Transmission Date: 20141212
  Serious: Yes (Hospitalization)
  Sender: FDA-Public Use
  Company Number: JP-BAYER-2013-109467

PATIENT
  Age: 65 Year
  Sex: Male
  Weight: 59 kg

DRUGS (10)
  1. STIVARGA [Suspect]
     Indication: COLON CANCER
     Dosage: 160 MG, QD
     Route: 048
     Dates: start: 20130705, end: 20130801
  2. STIVARGA [Suspect]
     Indication: COLON CANCER
     Dosage: SECOND CYCLE, 160 MG, QD (ON 2 WEEKS AND OFF FOR 2 WEEKS)
     Route: 048
     Dates: start: 20130829, end: 20131031
  3. STIVARGA [Suspect]
     Indication: COLON CANCER
     Dosage: 160 MG, QD
     Dates: start: 20131107
  4. STIVARGA [Suspect]
     Indication: COLON CANCER
     Dosage: ON 2 WEEKS AND OFF FOR 1 WEEK
     Dates: start: 20131107, end: 20131127
  5. STIVARGA [Suspect]
     Indication: COLON CANCER
     Dosage: ON 3 WEEKS AND OFF FOR 1 WEEK
     Dates: start: 20131128
  6. REBAMIPIDE [Concomitant]
     Indication: GASTRITIS PROPHYLAXIS
     Dosage: DAILY DOSE 300 MG
     Route: 048
  7. TRAMACET [PARACETAMOL,TRAMADOL HYDROCHLORIDE] [Concomitant]
     Indication: PAIN PROPHYLAXIS
     Dosage: DAILY DOSE 4 DF
     Route: 048
  8. HIRUDOID [Concomitant]
     Indication: DRUG TOXICITY PROPHYLAXIS
     Dosage: DAILY DOSE 25 MG PRN
     Route: 061
     Dates: start: 20130711
  9. MINOCYCLINE HYDROCHLORIDE [Concomitant]
     Dosage: DAILY DOSE 200 MG
     Route: 048
     Dates: start: 20130801, end: 20130911
  10. BETNOVAL G [Concomitant]
     Dosage: UNK
     Route: 061
     Dates: start: 20130801

REACTIONS (6)
  - Headache [Recovering/Resolving]
  - Dysphonia [Recovering/Resolving]
  - Malaise [Recovered/Resolved]
  - Hypertension [Recovering/Resolving]
  - Palmar-plantar erythrodysaesthesia syndrome [Recovering/Resolving]
  - Diarrhoea [Recovering/Resolving]
